FAERS Safety Report 5838047-0 (Version None)
Quarter: 2008Q3

REPORT INFORMATION
  Report Type: 
  Country: None (occurrence: None)
  Receive Date: 20080808
  Receipt Date: 20080408
  Transmission Date: 20090109
  Serious: No
  Sender: FDA-Public Use
  Company Number: A0721633A

PATIENT
  Sex: Female

DRUGS (5)
  1. PAXIL [Suspect]
     Indication: DEPRESSION
     Route: 048
  2. CARDENE SR [Concomitant]
  3. FOSAMAX [Concomitant]
  4. ANTIHYPERTENSIVE [Concomitant]
  5. THYROID MEDICATION [Concomitant]
     Indication: THYROID DISORDER

REACTIONS (3)
  - AGITATION [None]
  - DEPRESSION [None]
  - ILL-DEFINED DISORDER [None]
